FAERS Safety Report 15126499 (Version 1)
Quarter: 2018Q3

REPORT INFORMATION
  Report Type: Spontaneous
  Country: US (occurrence: US)
  Receive Date: 20180614
  Receipt Date: 20180614
  Transmission Date: 20181010
  Serious: Yes (Hospitalization, Other)
  Sender: FDA-Public Use
  Company Number: None

PATIENT
  Age: 60 Year
  Sex: Female
  Weight: 68.85 kg

DRUGS (1)
  1. RECLAST [Suspect]
     Active Substance: ZOLEDRONIC ACID
     Indication: OSTEOPOROSIS
     Dosage: ?          OTHER FREQUENCY:YEARLY;?
     Route: 040
     Dates: start: 20180606, end: 20180606

REACTIONS (7)
  - Infusion related reaction [None]
  - Idiopathic orbital inflammation [None]
  - Cellulitis orbital [None]
  - Pain [None]
  - Eye pain [None]
  - Headache [None]
  - Eye discharge [None]

NARRATIVE: CASE EVENT DATE: 20180606
